FAERS Safety Report 4803479-6 (Version None)
Quarter: 2005Q4

REPORT INFORMATION
  Report Type: 
  Country: None (occurrence: None)
  Receive Date: 20051019
  Receipt Date: 20051010
  Transmission Date: 20060501
  Serious: Yes (Hospitalization)
  Sender: FDA-Public Use
  Company Number: 2005CG01671

PATIENT
  Age: 90 Year
  Sex: Female

DRUGS (5)
  1. HYTACAND [Suspect]
     Indication: ESSENTIAL HYPERTENSION
     Route: 048
  2. MONICOR LP [Concomitant]
     Indication: ANGINA PECTORIS
     Route: 048
  3. CELIPROLOL [Concomitant]
     Indication: ESSENTIAL HYPERTENSION
     Route: 048
  4. TARDYFERON [Concomitant]
     Route: 048
  5. KARDEGIC [Concomitant]
     Indication: ANGINA PECTORIS
     Route: 048

REACTIONS (6)
  - CONFUSIONAL STATE [None]
  - FALL [None]
  - HALLUCINATION [None]
  - HALLUCINATIONS, MIXED [None]
  - HEAD INJURY [None]
  - HYPONATRAEMIA [None]
